FAERS Safety Report 18589371 (Version 1)
Quarter: 2020Q4

REPORT INFORMATION
  Report Type: Spontaneous
  Country: US (occurrence: US)
  Receive Date: 20201208
  Receipt Date: 20201208
  Transmission Date: 20210114
  Serious: No
  Sender: FDA-Public Use
  Company Number: US-JNJFOC-20201205155

PATIENT
  Sex: Male

DRUGS (1)
  1. XARELTO [Suspect]
     Active Substance: RIVAROXABAN
     Indication: CEREBROVASCULAR ACCIDENT
     Route: 048

REACTIONS (4)
  - Mouth haemorrhage [Unknown]
  - Skin haemorrhage [Unknown]
  - Haemoptysis [Unknown]
  - Dysgeusia [Unknown]

NARRATIVE: CASE EVENT DATE: 202005
